FAERS Safety Report 16654501 (Version 1)
Quarter: 2019Q3

REPORT INFORMATION
  Report Type: Spontaneous
  Country: GB (occurrence: GB)
  Receive Date: 20190731
  Receipt Date: 20190731
  Transmission Date: 20191004
  Serious: Yes (Other)
  Sender: FDA-Public Use
  Company Number: GB-MARKSANS PHARMA LIMITED-2071658

PATIENT
  Age: 20 Year
  Sex: Female

DRUGS (4)
  1. FLUOXETINE MOLECULE FROM UK MARKET [Suspect]
     Active Substance: FLUOXETINE HYDROCHLORIDE
     Route: 048
  2. PARACETAMOL [Suspect]
     Active Substance: ACETAMINOPHEN
  3. VALIUM [Suspect]
     Active Substance: DIAZEPAM
  4. APIXABAN [Suspect]
     Active Substance: APIXABAN

REACTIONS (1)
  - Overdose [None]
